FAERS Safety Report 11269203 (Version 1)
Quarter: 2015Q3

REPORT INFORMATION
  Report Type: Spontaneous
  Country: US (occurrence: US)
  Receive Date: 20150714
  Receipt Date: 20150714
  Transmission Date: 20151125
  Serious: No
  Sender: FDA-Public Use
  Company Number: PHEH2015US001702

PATIENT
  Sex: Male

DRUGS (1)
  1. DIOVAN [Suspect]
     Active Substance: VALSARTAN
     Indication: HYPERTENSION
     Dosage: 80 MG, UNK
     Route: 065

REACTIONS (9)
  - Vision blurred [Unknown]
  - Hypoaesthesia [Unknown]
  - Rash [Unknown]
  - Burning sensation [Unknown]
  - Decreased appetite [Unknown]
  - Lethargy [Unknown]
  - Insomnia [Unknown]
  - Alopecia [Unknown]
  - Hypersensitivity [Unknown]
